FAERS Safety Report 7238257-4 (Version None)
Quarter: 2011Q1

REPORT INFORMATION
  Report Type: 
  Country: None (occurrence: None)
  Receive Date: 20110119
  Receipt Date: 20110119
  Transmission Date: 20110831
  Serious: No
  Sender: FDA-Public Use
  Company Number: None

PATIENT
  Age: 12 Year
  Sex: Female
  Weight: 52.1637 kg

DRUGS (1)
  1. SINGULAIR [Suspect]

REACTIONS (4)
  - SOCIAL AVOIDANT BEHAVIOUR [None]
  - HEADACHE [None]
  - ABNORMAL BEHAVIOUR [None]
  - DEPRESSION [None]
